FAERS Safety Report 7071838-X (Version None)
Quarter: 2010Q4

REPORT INFORMATION
  Report Type: 
  Country: None (occurrence: None)
  Receive Date: 20101029
  Receipt Date: 20091027
  Transmission Date: 20110411
  Serious: No
  Sender: FDA-Public Use
  Company Number: A0813613A

PATIENT
  Sex: Male

DRUGS (4)
  1. ADVAIR DISKUS 100/50 [Suspect]
     Indication: ASTHMA
     Route: 055
     Dates: start: 20080101, end: 20080101
  2. BLOOD PRESSURE MEDICATION [Concomitant]
  3. NITROGLYCERIN [Concomitant]
  4. HEART MEDICATION [Concomitant]

REACTIONS (1)
  - NONSPECIFIC REACTION [None]
